FAERS Safety Report 12624968 (Version 1)
Quarter: 2016Q3

REPORT INFORMATION
  Report Type: Spontaneous
  Country: US (occurrence: None)
  Receive Date: 20160804
  Receipt Date: 20160804
  Transmission Date: 20161109
  Serious: Yes (Death)
  Sender: FDA-Public Use
  Company Number: None

PATIENT
  Age: 58 Year
  Sex: Male

DRUGS (3)
  1. COTELLIC [Suspect]
     Active Substance: COBIMETINIB
     Indication: SKIN CANCER
     Dosage: Q X 21
     Route: 048
     Dates: start: 20160413, end: 20160728
  2. LANTUS [Concomitant]
     Active Substance: INSULIN GLARGINE
  3. ZELBORAF [Suspect]
     Active Substance: VEMURAFENIB
     Indication: SKIN CANCER
     Route: 048
     Dates: start: 20160413, end: 20160728

REACTIONS (1)
  - Death [None]

NARRATIVE: CASE EVENT DATE: 20160728
